FAERS Safety Report 18244017 (Version 3)
Quarter: 2020Q4

REPORT INFORMATION
  Report Type: Report from Study
  Country: US (occurrence: US)
  Receive Date: 20200908
  Receipt Date: 20201207
  Transmission Date: 20210113
  Serious: No
  Sender: FDA-Public Use
  Company Number: NVSC2020US241076

PATIENT
  Sex: Female

DRUGS (1)
  1. TABRECTA [Suspect]
     Active Substance: CAPMATINIB
     Indication: NON-SMALL CELL LUNG CANCER
     Dosage: UNK
     Route: 048
     Dates: start: 202011

REACTIONS (4)
  - Pruritus [Recovering/Resolving]
  - Fatigue [Unknown]
  - Hepatic enzyme increased [Recovered/Resolved]
  - Asthenia [Unknown]
